FAERS Safety Report 5672911-0 (Version None)
Quarter: 2008Q1

REPORT INFORMATION
  Report Type: 
  Country: None (occurrence: None)
  Receive Date: 20080319
  Receipt Date: 20070928
  Transmission Date: 20080703
  Serious: No
  Sender: FDA-Public Use
  Company Number: US-ASTRAZENECA-2007UW22776

PATIENT
  Age: 63 Year
  Sex: Female
  Weight: 90.7 kg

DRUGS (9)
  1. SYMBICORT [Suspect]
     Indication: CHRONIC OBSTRUCTIVE PULMONARY DISEASE
     Dosage: 160/4.5 UG BID
     Route: 055
     Dates: start: 20070926
  2. SYMBICORT [Suspect]
     Indication: EMPHYSEMA
     Dosage: 160/4.5 UG BID
     Route: 055
     Dates: start: 20070926
  3. SYMBICORT [Suspect]
     Indication: ASTHMA
     Dosage: 160/4.5 UG BID
     Route: 055
     Dates: start: 20070926
  4. SPIRIVA [Concomitant]
  5. VENTOLIN [Concomitant]
  6. PAXIL [Concomitant]
  7. XANAX [Concomitant]
  8. FLONASE [Concomitant]
  9. CARDURA [Concomitant]

REACTIONS (1)
  - HEART RATE DECREASED [None]
